FAERS Safety Report 19857966 (Version 1)
Quarter: 2021Q3

REPORT INFORMATION
  Report Type: Spontaneous
  Country: NL (occurrence: NL)
  Receive Date: 20210921
  Receipt Date: 20210921
  Transmission Date: 20211014
  Serious: Yes (Hospitalization, Other)
  Sender: FDA-Public Use
  Company Number: NL-AUROBINDO-AUR-APL-2021-039014

PATIENT
  Age: 83 Year
  Sex: Female
  Weight: 92 kg

DRUGS (5)
  1. CEFTAZIDIME. [Concomitant]
     Active Substance: CEFTAZIDIME
     Indication: HAEMATOMA
     Dosage: UNK
     Route: 048
  2. FLUCONAZOLE. [Interacting]
     Active Substance: FLUCONAZOLE
     Dosage: 400 MILLIGRAM, ONCE A DAY
     Route: 048
  3. RIFAMPICIN [Interacting]
     Active Substance: RIFAMPIN
     Indication: HAEMATOMA
     Dosage: 450 MILLIGRAM, TWO TIMES A DAY
     Route: 048
  4. FLUCONAZOLE. [Suspect]
     Active Substance: FLUCONAZOLE
     Indication: CANDIDA INFECTION
     Dosage: 800 MILLIGRAM, ONCE A DAY (LOADING DOSE)
     Route: 048
  5. VANCOMYCIN [Concomitant]
     Active Substance: VANCOMYCIN
     Indication: HAEMATOMA
     Dosage: UNK
     Route: 048

REACTIONS (3)
  - Renal impairment [Recovered/Resolved]
  - Drug level increased [Recovered/Resolved]
  - Drug interaction [Recovered/Resolved]
